FAERS Safety Report 12624560 (Version 1)
Quarter: 2016Q3

REPORT INFORMATION
  Report Type: Spontaneous
  Country: US (occurrence: None)
  Receive Date: 20160804
  Receipt Date: 20160804
  Transmission Date: 20161109
  Serious: Yes (Hospitalization, Disabling, Other)
  Sender: FDA-Public Use
  Company Number: None

PATIENT
  Age: 52 Year
  Sex: Female
  Weight: 90.72 kg

DRUGS (5)
  1. AMBIEN [Concomitant]
     Active Substance: ZOLPIDEM TARTRATE
  2. WELLBUTRIN XL [Suspect]
     Active Substance: BUPROPION HYDROCHLORIDE
     Indication: DEPRESSION
     Route: 048
  3. TOPAMAX [Concomitant]
     Active Substance: TOPIRAMATE
  4. WELLBUTRIN XL [Concomitant]
     Active Substance: BUPROPION HYDROCHLORIDE
  5. XANAX [Concomitant]
     Active Substance: ALPRAZOLAM

REACTIONS (7)
  - Abnormal behaviour [None]
  - Drug ineffective [None]
  - Anger [None]
  - Product substitution issue [None]
  - Palpitations [None]
  - Physical assault [None]
  - Depression [None]

NARRATIVE: CASE EVENT DATE: 20160719
